FAERS Safety Report 5844408-6 (Version None)
Quarter: 2008Q3

REPORT INFORMATION
  Report Type: 
  Country: None (occurrence: None)
  Receive Date: 20080808
  Receipt Date: 20080730
  Transmission Date: 20090109
  Serious: Yes (Life-Threatening)
  Sender: FDA-Public Use
  Company Number: 2002JP005747

PATIENT
  Age: 58 Year
  Sex: Female
  Weight: 52 kg

DRUGS (12)
  1. TACROLIMUS [Suspect]
     Indication: RENAL TRANSPLANT
     Dosage: 5 MG, UID/QD, ORAL, 4 MG, /D, ORAL, 2 MG /D, ORAL, 1 MG, /D, ORAL
     Route: 048
     Dates: start: 20020806, end: 20020826
  2. TACROLIMUS [Suspect]
     Indication: RENAL TRANSPLANT
     Dosage: 5 MG, UID/QD, ORAL, 4 MG, /D, ORAL, 2 MG /D, ORAL, 1 MG, /D, ORAL
     Route: 048
     Dates: start: 20001106
  3. TACROLIMUS [Suspect]
     Indication: RENAL TRANSPLANT
     Dosage: 5 MG, UID/QD, ORAL, 4 MG, /D, ORAL, 2 MG /D, ORAL, 1 MG, /D, ORAL
     Route: 048
     Dates: start: 20020827
  4. CELLCEPT [Suspect]
     Indication: RENAL TRANSPLANT
     Dosage: 750 MG, BID, ORAL, 5 MG, UID/QD, ORAL, 1 G, /D, ORAL, ORAL
     Route: 048
     Dates: start: 20010110, end: 20020622
  5. CELLCEPT [Suspect]
     Indication: RENAL TRANSPLANT
     Dosage: 750 MG, BID, ORAL, 5 MG, UID/QD, ORAL, 1 G, /D, ORAL, ORAL
     Route: 048
     Dates: start: 20020623
  6. PREDNISOLONE [Suspect]
     Indication: RENAL TRANSPLANT
     Dosage: 5 MG, UID/QD, ORAL, ORAL, 15 MG /D, ORAL
     Route: 048
     Dates: end: 20020826
  7. PREDNISOLONE [Suspect]
     Indication: RENAL TRANSPLANT
     Dosage: 5 MG, UID/QD, ORAL, ORAL, 15 MG /D, ORAL
     Route: 048
     Dates: start: 20001106
  8. PREDNISOLONE [Suspect]
     Indication: RENAL TRANSPLANT
     Dosage: 5 MG, UID/QD, ORAL, ORAL, 15 MG /D, ORAL
     Route: 048
     Dates: start: 20020827
  9. BLOPRESS (CANDESARTAN CILEXETIL) TABLET [Concomitant]
  10. NEUER (CETRAXATE HYDROCHLORIDE) CAPSULE [Concomitant]
  11. GASTER TABLET [Concomitant]
  12. MIZORIBINE (MIZORIBINE) FORMULATION [Concomitant]

REACTIONS (3)
  - HERPES ZOSTER [None]
  - KAPOSI'S SARCOMA [None]
  - ORAL HERPES [None]
